FAERS Safety Report 10159582 (Version 1)
Quarter: 2014Q2

REPORT INFORMATION
  Report Type: Report from Study
  Country: JP (occurrence: JP)
  Receive Date: 20140508
  Receipt Date: 20140508
  Transmission Date: 20141212
  Serious: Yes (Hospitalization)
  Sender: FDA-Public Use
  Company Number: JP-MYLANLABS-2014S1009854

PATIENT
  Age: 63 Year
  Sex: Female

DRUGS (4)
  1. PACLITAXEL [Suspect]
     Indication: BREAST CANCER STAGE II
     Route: 041
  2. FLUOROURACIL [Suspect]
     Indication: BREAST CANCER STAGE II
     Dosage: ON D1 FOR 4 CYCLES; PART OF FEC100 REGIMEN
     Route: 042
  3. CYCLOPHOSPHAMIDE [Suspect]
     Indication: BREAST CANCER STAGE II
     Dosage: ON D1 FOR 4 CYCLES; PART OF FEC100 REGIMEN
     Route: 042
  4. EPIRUBICIN [Suspect]
     Indication: BREAST CANCER STAGE II
     Dosage: ON D1 FOR 4 CYCLES; PART OF FEC100 REGIMEN
     Route: 042

REACTIONS (3)
  - Interstitial lung disease [Recovered/Resolved]
  - Pyrexia [Unknown]
  - Fatigue [Unknown]
